FAERS Safety Report 5696413-0 (Version None)
Quarter: 2008Q2

REPORT INFORMATION
  Report Type: 
  Country: None (occurrence: None)
  Receive Date: 20080408
  Receipt Date: 20080404
  Transmission Date: 20081010
  Serious: Yes (Other)
  Sender: FDA-Public Use
  Company Number: US-RANBAXY-2008US-14220

PATIENT

DRUGS (5)
  1. CIPROFLOXACIN [Suspect]
     Indication: MYCOBACTERIUM AVIUM COMPLEX INFECTION
     Dosage: 500 MG, BID
     Route: 048
     Dates: start: 20080105, end: 20080114
  2. MYCOBUTIN [Suspect]
     Indication: MYCOBACTERIUM AVIUM COMPLEX INFECTION
     Dosage: 150 MG, BID
     Route: 048
     Dates: start: 20080105, end: 20080114
  3. AZITHROMYCIN [Suspect]
     Indication: MYCOBACTERIUM AVIUM COMPLEX INFECTION
     Dosage: 250 MG, QD
     Route: 048
     Dates: start: 20080105, end: 20080114
  4. FOSAMAX [Concomitant]
     Indication: DRUG USE FOR UNKNOWN INDICATION
     Dosage: UNK
  5. BENADRYL [Concomitant]
     Indication: DRUG USE FOR UNKNOWN INDICATION
     Dosage: UNK

REACTIONS (7)
  - ASTHENIA [None]
  - DEHYDRATION [None]
  - NAUSEA [None]
  - ORAL DISCOMFORT [None]
  - PLATELET COUNT DECREASED [None]
  - URTICARIA [None]
  - WHITE BLOOD CELL COUNT DECREASED [None]
